FAERS Safety Report 23601424 (Version 2)
Quarter: 2025Q3

REPORT INFORMATION
  Report Type: Spontaneous
  Country: US (occurrence: US)
  Receive Date: 20240306
  Receipt Date: 20250916
  Transmission Date: 20251021
  Serious: No
  Sender: PFIZER
  Company Number: US-PFIZER INC-PV202400031325

PATIENT
  Age: 71 Year
  Sex: Female
  Weight: 58.97 kg

DRUGS (3)
  1. IBRANCE [Suspect]
     Active Substance: PALBOCICLIB
     Indication: Breast cancer female
     Route: 048
  2. IBRANCE [Suspect]
     Active Substance: PALBOCICLIB
     Dosage: 25 MG, 1X/DAY (FOR 21 DAYS THAN I AM ALSO THAT 7 DAYS)
     Route: 048
     Dates: start: 202108
  3. LETROZOLE [Suspect]
     Active Substance: LETROZOLE
     Indication: Breast cancer female
     Dates: start: 202108

REACTIONS (5)
  - COVID-19 [Unknown]
  - Anaemia [Recovered/Resolved]
  - Red blood cell count increased [Recovering/Resolving]
  - White blood cell count increased [Unknown]
  - Off label use [Unknown]
